FAERS Safety Report 11310107 (Version 1)
Quarter: 2015Q3

REPORT INFORMATION
  Report Type: Spontaneous
  Country: US (occurrence: US)
  Receive Date: 20150724
  Receipt Date: 20150724
  Transmission Date: 20151125
  Serious: No
  Sender: FDA-Public Use
  Company Number: US-GE HEALTHCARE MEDICAL DIAGNOSTICS-TMDP-PR-1502S-0001

PATIENT
  Sex: Female

DRUGS (2)
  1. TECHNETIUM TC99M MEDRONATE INJECTION [Suspect]
     Active Substance: TECHNETIUM TC-99M MEDRONATE
     Indication: PRODUCT USED FOR UNKNOWN INDICATION
     Dates: start: 20150128, end: 20150128
  2. TECHNETIUM TC99M MEDRONATE INJECTION [Suspect]
     Active Substance: TECHNETIUM TC-99M MEDRONATE
     Indication: DIAGNOSTIC PROCEDURE

REACTIONS (2)
  - Rash [Recovering/Resolving]
  - Erythema [Recovering/Resolving]

NARRATIVE: CASE EVENT DATE: 20150128
